FAERS Safety Report 24104525 (Version 2)
Quarter: 2024Q3

REPORT INFORMATION
  Report Type: Spontaneous
  Country: US (occurrence: US)
  Receive Date: 20240717
  Receipt Date: 20240717
  Transmission Date: 20241017
  Serious: Yes (Other)
  Sender: ROCHE
  Company Number: US-ROCHE-10000020328

PATIENT
  Age: 45 Year
  Sex: Female
  Weight: 58.97 kg

DRUGS (1)
  1. RITUXAN [Suspect]
     Active Substance: RITUXIMAB
     Indication: Sjogren^s syndrome
     Route: 042
     Dates: end: 20180507

REACTIONS (40)
  - Off label use [Unknown]
  - Speech disorder [Recovered/Resolved]
  - Neurotoxicity [Not Recovered/Not Resolved]
  - Haemosiderin stain [Recovered/Resolved]
  - Multiple endocrine neoplasia [Not Recovered/Not Resolved]
  - Adrenogenital syndrome [Not Recovered/Not Resolved]
  - Peripheral swelling [Recovered/Resolved]
  - Hallucination [Recovered/Resolved]
  - Pain in extremity [Not Recovered/Not Resolved]
  - Paraneoplastic pemphigus [Recovered/Resolved]
  - Memory impairment [Not Recovered/Not Resolved]
  - Neurotoxicity [Not Recovered/Not Resolved]
  - Burn of internal organs [Not Recovered/Not Resolved]
  - Hypersensitivity [Not Recovered/Not Resolved]
  - Adrenocortical insufficiency acute [Not Recovered/Not Resolved]
  - Weight decreased [Recovered/Resolved]
  - Urinary incontinence [Not Recovered/Not Resolved]
  - Insomnia [Not Recovered/Not Resolved]
  - General physical health deterioration [Not Recovered/Not Resolved]
  - Muscular weakness [Not Recovered/Not Resolved]
  - Balance disorder [Not Recovered/Not Resolved]
  - Mental impairment [Not Recovered/Not Resolved]
  - Peripheral nerve injury [Not Recovered/Not Resolved]
  - Hypoaesthesia [Not Recovered/Not Resolved]
  - Hypoaesthesia [Not Recovered/Not Resolved]
  - Eye movement disorder [Recovered/Resolved]
  - Myocardial infarction [Recovered/Resolved]
  - Pain in jaw [Recovered/Resolved]
  - Triple negative breast cancer [Recovered/Resolved]
  - Intervertebral disc disorder [Recovered/Resolved]
  - Myasthenia gravis [Not Recovered/Not Resolved]
  - Nerve compression [Not Recovered/Not Resolved]
  - Bone pain [Not Recovered/Not Resolved]
  - Encephalitis viral [Unknown]
  - Thermal burn [Not Recovered/Not Resolved]
  - Demyelination [Not Recovered/Not Resolved]
  - Gastrointestinal disorder [Recovered/Resolved]
  - Pain [Recovered/Resolved]
  - Tremor [Not Recovered/Not Resolved]
  - Anal incontinence [Not Recovered/Not Resolved]

NARRATIVE: CASE EVENT DATE: 20160401
